FAERS Safety Report 13030932 (Version 1)
Quarter: 2016Q4

REPORT INFORMATION
  Report Type: Spontaneous
  Country: FR (occurrence: FR)
  Receive Date: 20161215
  Receipt Date: 20161215
  Transmission Date: 20170207
  Serious: Yes (Hospitalization)
  Sender: FDA-Public Use
  Company Number: FR-ABBVIE-16K-056-1764766-00

PATIENT
  Age: 18 Year
  Sex: Female

DRUGS (3)
  1. HUMIRA [Suspect]
     Active Substance: ADALIMUMAB
     Dosage: 2 X 40 MG AT J14
     Route: 058
     Dates: start: 201602, end: 201602
  2. HUMIRA [Suspect]
     Active Substance: ADALIMUMAB
     Indication: PRODUCT USED FOR UNKNOWN INDICATION
     Dosage: 2 X 40 MG AT J0
     Route: 058
     Dates: start: 201602, end: 201602
  3. HUMIRA [Suspect]
     Active Substance: ADALIMUMAB
     Route: 058
     Dates: start: 201602, end: 201610

REACTIONS (8)
  - Leukocytosis [Recovered/Resolved]
  - Ophthalmoplegia [Recovered/Resolved]
  - Chills [Recovered/Resolved]
  - Neck pain [Recovered/Resolved]
  - Rash vesicular [Unknown]
  - Immunosuppression [Unknown]
  - Meningitis viral [Recovered/Resolved]
  - Listeriosis [Unknown]

NARRATIVE: CASE EVENT DATE: 2016
